FAERS Safety Report 9553469 (Version 1)
Quarter: 2013Q3

REPORT INFORMATION
  Report Type: Spontaneous
  Country: CH (occurrence: CH)
  Receive Date: 20130925
  Receipt Date: 20130925
  Transmission Date: 20140515
  Serious: Yes (Hospitalization)
  Sender: FDA-Public Use
  Company Number: CH-ASTRAZENECA-2013SE70154

PATIENT
  Age: 68 Year
  Sex: Female
  Weight: 81 kg

DRUGS (11)
  1. ATACAND [Suspect]
     Indication: HYPERTENSION
     Route: 048
     Dates: end: 20130621
  2. MICARDIS [Suspect]
     Indication: HYPERTENSION
     Route: 048
     Dates: end: 20130621
  3. TOREM [Suspect]
     Route: 048
     Dates: end: 20130621
  4. HYGROTON [Suspect]
     Route: 048
     Dates: end: 20130621
  5. ASPIRIN CARDIO [Concomitant]
     Route: 048
  6. NEBIVOLOL [Concomitant]
     Route: 048
     Dates: end: 20130621
  7. AMLODIPIN [Concomitant]
     Route: 048
  8. SORTIS [Concomitant]
     Route: 048
  9. PANTOZOL [Concomitant]
     Route: 048
  10. METFIN [Concomitant]
     Route: 048
     Dates: end: 20130621
  11. NOVOMIX [Concomitant]
     Dosage: 30%/70%, 1 DF
     Route: 058

REACTIONS (2)
  - Renal failure acute [Recovering/Resolving]
  - Medication error [Recovered/Resolved]
